FAERS Safety Report 6185285-6 (Version None)
Quarter: 2009Q2

REPORT INFORMATION
  Report Type: 
  Country: None (occurrence: None)
  Receive Date: 20090511
  Receipt Date: 20090429
  Transmission Date: 20091009
  Serious: Yes (Hospitalization)
  Sender: FDA-Public Use
  Company Number: US-ROCHE-608577

PATIENT
  Sex: Female

DRUGS (7)
  1. PEG-INTERFERON A-2A (RO 25-8310) [Suspect]
     Indication: HEPATITIS C
     Dosage: FORM: PRE-FILLED SYRINGE
     Route: 065
     Dates: start: 20080925
  2. PEG-INTERFERON A-2A (RO 25-8310) [Suspect]
     Route: 065
  3. PEG-INTERFERON A-2A (RO 25-8310) [Suspect]
     Route: 065
  4. RIBAVIRIN [Suspect]
     Indication: HEPATITIS C
     Route: 065
     Dates: start: 20080925
  5. RIBAVIRIN [Suspect]
     Route: 065
  6. RIBAVIRIN [Suspect]
     Indication: HEPATITIS C
     Route: 065
  7. LORAZEPAM [Concomitant]

REACTIONS (4)
  - FULL BLOOD COUNT DECREASED [None]
  - MEMORY IMPAIRMENT [None]
  - PLATELET COUNT DECREASED [None]
  - STOMATITIS [None]
